FAERS Safety Report 9596708 (Version 1)
Quarter: 2013Q4

REPORT INFORMATION
  Report Type: Spontaneous
  Country: GB (occurrence: GB)
  Receive Date: 20131004
  Receipt Date: 20131004
  Transmission Date: 20140711
  Serious: Yes (Other)
  Sender: FDA-Public Use
  Company Number: GB-GLAXOSMITHKLINE-B0921648A

PATIENT
  Age: 61 Year
  Sex: Male
  Weight: 82 kg

DRUGS (2)
  1. COMBODART [Suspect]
     Indication: BENIGN PROSTATIC HYPERPLASIA
     Route: 065
     Dates: start: 201105
  2. BRONCHODILATOR [Concomitant]

REACTIONS (4)
  - Ejaculation disorder [Recovered/Resolved]
  - Hyperaesthesia [Recovered/Resolved]
  - Skin plaque [Recovered/Resolved]
  - Rash [Recovered/Resolved]
